FAERS Safety Report 8267651-8 (Version None)
Quarter: 2012Q2

REPORT INFORMATION
  Report Type: 
  Country: None (occurrence: None)
  Receive Date: 20120409
  Receipt Date: 20120326
  Transmission Date: 20120825
  Serious: Yes (Life-Threatening, Hospitalization)
  Sender: FDA-Public Use
  Company Number: FR-PFIZER INC-2012075353

PATIENT
  Age: 62 Year
  Sex: Male

DRUGS (5)
  1. ASPIRIN [Concomitant]
     Dosage: 75 MG, 1X/DAY
  2. TENORMIN [Suspect]
     Dosage: 50 MG, 1X/DAY
     Route: 048
     Dates: start: 20110501
  3. PLAVIX [Suspect]
     Dosage: 75 MG, 1X/DAY
     Route: 048
     Dates: start: 20110501, end: 20111004
  4. ATORVASTATIN [Suspect]
     Dosage: 40 MG, 1X/DAY
     Route: 048
     Dates: start: 20110501, end: 20110918
  5. PERINDOPRIL ERBUMINE [Suspect]
     Dosage: 4 MG, 1X/DAY
     Route: 048
     Dates: start: 20110501, end: 20110918

REACTIONS (2)
  - LARGE INTESTINE PERFORATION [None]
  - HEPATITIS FULMINANT [None]
